FAERS Safety Report 11089062 (Version 1)
Quarter: 2015Q2

REPORT INFORMATION
  Report Type: Report from Study
  Country: IN (occurrence: IN)
  Receive Date: 20150505
  Receipt Date: 20150505
  Transmission Date: 20150821
  Serious: Yes (Death)
  Sender: FDA-Public Use
  Company Number: IN-ROCHE-1570687

PATIENT
  Age: 58 Year
  Sex: Male

DRUGS (8)
  1. CELLCEPT [Suspect]
     Active Substance: MYCOPHENOLATE MOFETIL\MYCOPHENOLATE MOFETIL HYDROCHLORIDE
     Indication: RENAL TRANSPLANT
     Route: 048
     Dates: start: 20150218, end: 20150413
  2. DEFZA [Concomitant]
     Route: 048
     Dates: start: 20150401, end: 20150413
  3. OFLOXACIN. [Concomitant]
     Active Substance: OFLOXACIN
     Route: 048
     Dates: start: 20150401
  4. TACROLIMUS. [Concomitant]
     Active Substance: TACROLIMUS
     Route: 048
     Dates: start: 20150401, end: 20150413
  5. CLOTRIMAZOLE. [Concomitant]
     Active Substance: CLOTRIMAZOLE
     Route: 065
     Dates: start: 20150401
  6. BECOSULES-Z [Concomitant]
     Route: 065
     Dates: start: 20150401, end: 20150413
  7. CELLCEPT [Suspect]
     Active Substance: MYCOPHENOLATE MOFETIL\MYCOPHENOLATE MOFETIL HYDROCHLORIDE
     Indication: RENAL TRANSPLANT
     Route: 048
     Dates: start: 20150218, end: 20150413
  8. MOXONIDINE [Concomitant]
     Active Substance: MOXONIDINE
     Route: 048
     Dates: start: 20150401

REACTIONS (1)
  - Dyspnoea [Fatal]

NARRATIVE: CASE EVENT DATE: 20150413
